FAERS Safety Report 6258126-6 (Version None)
Quarter: 2009Q3

REPORT INFORMATION
  Report Type: 
  Country: None (occurrence: None)
  Receive Date: 20090702
  Receipt Date: 20090623
  Transmission Date: 20100115
  Serious: Yes (Other)
  Sender: FDA-Public Use
  Company Number: 2009SP013987

PATIENT
  Age: 18 Year
  Sex: Female

DRUGS (4)
  1. NOXAFIL [Suspect]
     Indication: ANTIFUNGAL PROPHYLAXIS
     Dosage: PO
     Route: 048
  2. LUTENYL (NOMEGESTROL ACETATE) [Suspect]
     Indication: DRUG USE FOR UNKNOWN INDICATION
  3. RIVOTRIL (CLONAZEPAM) [Suspect]
     Indication: DRUG USE FOR UNKNOWN INDICATION
  4. CYCLOSPORINE [Suspect]
     Indication: DRUG USE FOR UNKNOWN INDICATION

REACTIONS (2)
  - DRUG INTERACTION [None]
  - HYPERTRIGLYCERIDAEMIA [None]
